FAERS Safety Report 4900918-7 (Version None)
Quarter: 2006Q1

REPORT INFORMATION
  Report Type: 
  Country: None (occurrence: None)
  Receive Date: 20060201
  Receipt Date: 20060117
  Transmission Date: 20060701
  Serious: Yes (Hospitalization, Other)
  Sender: FDA-Public Use
  Company Number: 2005US001667

PATIENT
  Age: 62 Year
  Sex: Male

DRUGS (22)
  1. PROGRAF [Suspect]
     Indication: PROPHYLAXIS AGAINST TRANSPLANT REJECTION
     Dosage: 1.5 MG, BID, ORAL
     Route: 048
     Dates: start: 20050115
  2. PROGRAF [Suspect]
     Indication: PROPHYLAXIS AGAINST TRANSPLANT REJECTION
     Dosage: 1.5 MG, BID, ORAL
     Route: 048
     Dates: start: 20050118
  3. MYCOPHENOLATE MOFETIL                (MYCOPHENOLATE MOFETIL) [Suspect]
     Indication: PROPHYLAXIS AGAINST TRANSPLANT REJECTION
     Dosage: 1500.00 MG, BID, ORAL
     Route: 048
     Dates: start: 20050112
  4. PREDNISONE [Suspect]
     Indication: PROPHYLAXIS AGAINST TRANSPLANT REJECTION
     Dosage: 5 MG, UID/QD
     Dates: start: 20050111, end: 20050524
  5. DAPSONE [Concomitant]
  6. MORPHINE [Concomitant]
  7. NYSTATIN [Concomitant]
  8. PANTOPRAZOLE SODIUM [Concomitant]
  9. INSULIN GLARGINE                  (INSULIN GLARGINE) [Concomitant]
  10. VALGANCICLOVIR               (VALGANCICLOVIR) [Concomitant]
  11. NIFEDIPINE [Concomitant]
  12. DOXAZOSIN (DOXAZOSIN) [Concomitant]
  13. AVODART [Concomitant]
  14. INSULIN [Concomitant]
  15. ASPIRIN [Concomitant]
  16. LIPITOR [Concomitant]
  17. PROTONIX [Concomitant]
  18. ATENOLOL [Concomitant]
  19. CALCIUM CARBONATE [Concomitant]
  20. VITAMIN D [Concomitant]
  21. ISOPHANE INSULIN (ISOPHANE INSULIN) [Concomitant]
  22. INSUILIN (INSULIN) [Concomitant]

REACTIONS (6)
  - APHTHOUS STOMATITIS [None]
  - BACTERIAL INFECTION [None]
  - CULTURE URINE POSITIVE [None]
  - NEPHRITIS INTERSTITIAL [None]
  - NEUTROPENIA [None]
  - WHITE BLOOD CELL COUNT DECREASED [None]
